FAERS Safety Report 8023953-1 (Version None)
Quarter: 2012Q1

REPORT INFORMATION
  Report Type: 
  Country: None (occurrence: None)
  Receive Date: 20120105
  Receipt Date: 20120103
  Transmission Date: 20120608
  Serious: Yes (Other)
  Sender: FDA-Public Use
  Company Number: SE-PFIZER INC-2012001675

PATIENT
  Age: 32 Year
  Sex: Female

DRUGS (1)
  1. CYTOTEC [Suspect]
     Indication: POSTPARTUM HAEMORRHAGE
     Dosage: UNK
     Dates: start: 20090101

REACTIONS (5)
  - PYREXIA [None]
  - LOSS OF CONSCIOUSNESS [None]
  - MUSCLE SPASMS [None]
  - CHILLS [None]
  - HALLUCINATION [None]
